FAERS Safety Report 4314207-5 (Version None)
Quarter: 2004Q1

REPORT INFORMATION
  Report Type: 
  Country: None (occurrence: None)
  Receive Date: 20040309
  Receipt Date: 20040302
  Transmission Date: 20041129
  Serious: Yes (Other)
  Sender: FDA-Public Use
  Company Number: US-BRISTOL-MYERS SQUIBB COMPANY-12521423

PATIENT
  Age: 64 Year
  Sex: Female

DRUGS (1)
  1. TEQUIN [Suspect]
     Indication: UROSEPSIS

REACTIONS (1)
  - HYPERGLYCAEMIA [None]
